FAERS Safety Report 6312314-9 (Version None)
Quarter: 2009Q3

REPORT INFORMATION
  Report Type: 
  Country: None (occurrence: None)
  Receive Date: 20090817
  Receipt Date: 20090806
  Transmission Date: 20100115
  Serious: Yes (Hospitalization, Other)
  Sender: FDA-Public Use
  Company Number: US-BAXTER-2008BH009995

PATIENT
  Age: 52 Year
  Sex: Male
  Weight: 136 kg

DRUGS (9)
  1. LACTATED RINGER'S [Suspect]
     Indication: JOINT IRRIGATION
     Route: 014
     Dates: start: 20070129, end: 20070129
  2. EPINEPHRINE [Suspect]
     Indication: JOINT IRRIGATION
     Route: 014
     Dates: start: 20070129, end: 20070129
  3. 0.9% SODIUM CHLORIDE IRRIGATION IN PLASTIC CONTAINER [Suspect]
     Indication: JOINT IRRIGATION
     Route: 014
     Dates: start: 20070206, end: 20070206
  4. 0.9% SODIUM CHLORIDE IRRIGATION IN PLASTIC CONTAINER [Suspect]
     Route: 014
     Dates: start: 20070831, end: 20070831
  5. CYMBALTA [Concomitant]
     Indication: DEPRESSION
     Route: 048
  6. MOBIC [Concomitant]
     Indication: DRUG USE FOR UNKNOWN INDICATION
     Route: 048
     Dates: start: 20070101
  7. LORTAB [Concomitant]
     Indication: ARTHRALGIA
     Route: 048
     Dates: start: 20070101
  8. DURAGESIC-100 [Concomitant]
     Indication: ARTHRALGIA
     Route: 061
     Dates: start: 20070101
  9. ACIPHEX [Concomitant]
     Indication: DRUG USE FOR UNKNOWN INDICATION
     Route: 048
     Dates: start: 20070101

REACTIONS (5)
  - ARTHRITIS BACTERIAL [None]
  - INFECTION [None]
  - PSEUDOMONAS INFECTION [None]
  - PULMONARY EMBOLISM [None]
  - PULMONARY INFARCTION [None]
